FAERS Safety Report 8213841-X (Version None)
Quarter: 2012Q1

REPORT INFORMATION
  Report Type: 
  Country: None (occurrence: None)
  Receive Date: 20120316
  Receipt Date: 20120312
  Transmission Date: 20120608
  Serious: No
  Sender: FDA-Public Use
  Company Number: US-BIOGENIDEC-2011BI046818

PATIENT
  Age: 34 Year
  Sex: Female

DRUGS (1)
  1. TYSABRI [Suspect]
     Indication: MULTIPLE SCLEROSIS
     Route: 042
     Dates: start: 20111201

REACTIONS (12)
  - SOMNOLENCE [None]
  - BALANCE DISORDER [None]
  - FALL [None]
  - NAUSEA [None]
  - MULTIPLE SCLEROSIS RELAPSE [None]
  - MUSCLE SPASMS [None]
  - HYPOAESTHESIA [None]
  - SLEEP DISORDER [None]
  - FATIGUE [None]
  - PAIN IN EXTREMITY [None]
  - GAIT DISTURBANCE [None]
  - HEADACHE [None]
